FAERS Safety Report 20055251 (Version 1)
Quarter: 2021Q4

REPORT INFORMATION
  Report Type: Spontaneous
  Country: US (occurrence: US)
  Receive Date: 20211110
  Receipt Date: 20211110
  Transmission Date: 20220304
  Serious: No
  Sender: FDA-Public Use
  Company Number: US-KYOWAKIRIN-2021BKK018635

PATIENT

DRUGS (1)
  1. NOURIANZ [Suspect]
     Active Substance: ISTRADEFYLLINE
     Indication: Product used for unknown indication
     Dosage: 1 TABLET OF 20 MG DAILY
     Route: 048

REACTIONS (3)
  - Up and down phenomenon [Unknown]
  - Somnolence [Unknown]
  - Dizziness [Unknown]
